FAERS Safety Report 9444730 (Version 2)
Quarter: 2013Q3

REPORT INFORMATION
  Report Type: Report from Study
  Country: KR (occurrence: KR)
  Receive Date: 20130807
  Receipt Date: 20130912
  Transmission Date: 20140515
  Serious: Yes (Death, Hospitalization)
  Sender: FDA-Public Use
  Company Number: PHHO2013KR004676

PATIENT
  Sex: 0

DRUGS (1)
  1. AFINITOR [Suspect]
     Indication: GASTRIC CANCER RECURRENT
     Dosage: 10 MG, QD
     Route: 048
     Dates: start: 20130312, end: 20130330

REACTIONS (3)
  - Pneumonia [Recovering/Resolving]
  - Gastric cancer [Fatal]
  - Malignant neoplasm progression [Fatal]
